FAERS Safety Report 9994586 (Version 2)
Quarter: 2014Q2

REPORT INFORMATION
  Report Type: Spontaneous
  Country: IT (occurrence: IT)
  Receive Date: 20140311
  Receipt Date: 20140408
  Transmission Date: 20141212
  Serious: Yes (Other)
  Sender: FDA-Public Use
  Company Number: IT-ASTRAZENECA-2014SE15222

PATIENT
  Age: 7518 Day
  Sex: Female

DRUGS (4)
  1. SEROQUEL [Suspect]
     Indication: PERSONALITY DISORDER
     Route: 048
     Dates: start: 20140223, end: 20140223
  2. XANAX [Suspect]
     Indication: PERSONALITY DISORDER
     Dosage: 20 GTT, 0.75 MG/ML
     Route: 048
     Dates: start: 20140223, end: 20140223
  3. CITALOPRAM [Concomitant]
     Route: 048
  4. DIAZEPAM [Concomitant]
     Route: 048

REACTIONS (3)
  - Drug abuse [Unknown]
  - Toxicity to various agents [Recovering/Resolving]
  - Dermatillomania [Unknown]
